FAERS Safety Report 5985215-3 (Version None)
Quarter: 2008Q4

REPORT INFORMATION
  Report Type: 
  Country: None (occurrence: None)
  Receive Date: 20081203
  Receipt Date: 20081119
  Transmission Date: 20090506
  Serious: Yes (Death)
  Sender: FDA-Public Use
  Company Number: KV200800332

PATIENT
  Age: 59 Year
  Sex: Male

DRUGS (3)
  1. MORPHINE SULFATE [Suspect]
     Indication: CANCER PAIN
     Dosage: 15 MG ONE TO TWO TABLETS, QD, ORAL
     Route: 048
     Dates: start: 20080826, end: 20080901
  2. PREVACID [Concomitant]
  3. LYRICA [Concomitant]

REACTIONS (5)
  - INCOHERENT [None]
  - MALIGNANT MELANOMA [None]
  - MALIGNANT NEOPLASM PROGRESSION [None]
  - PRODUCT QUALITY ISSUE [None]
  - UNRESPONSIVE TO STIMULI [None]
